FAERS Safety Report 8762923 (Version 2)
Quarter: 2012Q4

REPORT INFORMATION
  Report Type: Spontaneous
  Country: None (occurrence: None)
  Receive Date: 20120823
  Receipt Date: 20120905
  Transmission Date: 20130627
  Serious: Yes (Hospitalization)
  Sender: FDA-Public Use
  Company Number: AUR-APL-2012-03525

PATIENT
  Age: 60 Year
  Sex: Male

DRUGS (9)
  1. RAMIPRIL (RAMIPRIL) [Suspect]
     Indication: DRUG USE FOR UNKNOWN INDICATION
  2. METFORMIN (METFORMIN) [Suspect]
     Indication: TYPE 2 DIABETES MELLITUS
     Dates: start: 20111115
  3. METFORMIN (METFORMIN) [Suspect]
     Indication: TYPE 2 DIABETES MELLITUS
     Dates: end: 20111115
  4. SAXAGLIPTIN [Suspect]
     Indication: TYPE 2 DIABETES MELLITUS
     Dates: start: 20110422
  5. INSULIN ASPART [Suspect]
     Indication: TYPE 2 DIABETES MELLITUS
  6. ROSUVASTATIN [Suspect]
     Indication: DRUG USE FOR UNKNOWN INDICATION
  7. PLACEBO [Suspect]
     Indication: DRUG USE FOR UNKNOWN INDICATION
     Dates: start: 20110422
  8. ACETYLSALICYLIC ACID (ACETYLSALICYLIC ACID) [Concomitant]
  9. ACNE STATIN (ACNE STATIN) [Concomitant]

REACTIONS (2)
  - Pancreatitis [None]
  - Hepatic steatosis [None]
